FAERS Safety Report 7327069-9 (Version None)
Quarter: 2011Q1

REPORT INFORMATION
  Report Type: 
  Country: None (occurrence: None)
  Receive Date: 20110218
  Receipt Date: 20110205
  Transmission Date: 20110831
  Serious: Yes (Other)
  Sender: FDA-Public Use
  Company Number: US-GDP-11409973

PATIENT
  Age: 47 Year
  Sex: Female

DRUGS (1)
  1. ORACEA [Suspect]
     Dosage: 40 MG QD, ORAL
     Route: 048
     Dates: start: 20110101, end: 20110205

REACTIONS (2)
  - CORNEAL OEDEMA [None]
  - VISUAL IMPAIRMENT [None]
